FAERS Safety Report 5889272-4 (Version None)
Quarter: 2008Q3

REPORT INFORMATION
  Report Type: 
  Country: None (occurrence: None)
  Receive Date: 20080917
  Receipt Date: 20080908
  Transmission Date: 20090109
  Serious: Yes (Life-Threatening, Hospitalization, Other)
  Sender: FDA-Public Use
  Company Number: CTI_00940_2008

PATIENT
  Sex: Female
  Weight: 76.6579 kg

DRUGS (7)
  1. ZYFLO CR [Suspect]
     Indication: ASTHMA
     Dosage: (1200 MG BID ORAL)
     Route: 048
     Dates: start: 20080108, end: 20080108
  2. CLOTRIMAZOLE [Concomitant]
  3. EVISTA /01303201/ [Concomitant]
  4. SINGULAIR [Concomitant]
  5. ADVAIR DISKUS 100/50 [Concomitant]
  6. COMBIVENT /01033501/ [Concomitant]
  7. DIOVAN /01319601/ [Concomitant]

REACTIONS (1)
  - ANAPHYLACTIC REACTION [None]
